FAERS Safety Report 8359246-2 (Version None)
Quarter: 2012Q2

REPORT INFORMATION
  Report Type: 
  Country: None (occurrence: None)
  Receive Date: 20120514
  Receipt Date: 20120514
  Transmission Date: 20120825
  Serious: Yes (Other)
  Sender: FDA-Public Use
  Company Number: None

PATIENT
  Sex: Male
  Weight: 92.9874 kg

DRUGS (1)
  1. MIRAPEX [Suspect]
     Indication: RESTLESS LEGS SYNDROME
     Dosage: 4 X 0.5MG DAILY PO
     Route: 048
     Dates: end: 20120415

REACTIONS (2)
  - SOMNOLENCE [None]
  - OBSESSIVE-COMPULSIVE DISORDER [None]
